FAERS Safety Report 13185559 (Version 1)
Quarter: 2017Q1

REPORT INFORMATION
  Report Type: Spontaneous
  Country: JP (occurrence: JP)
  Receive Date: 20170203
  Receipt Date: 20170203
  Transmission Date: 20170428
  Serious: Yes (Hospitalization)
  Sender: FDA-Public Use
  Company Number: JP-CELGENEUS-JPN-2017018914

PATIENT
  Age: 7 Decade

DRUGS (1)
  1. REVLIMID [Suspect]
     Active Substance: LENALIDOMIDE
     Indication: PRODUCT USED FOR UNKNOWN INDICATION
     Route: 048

REACTIONS (3)
  - Femur fracture [Recovered/Resolved with Sequelae]
  - Fall [Unknown]
  - Oedema peripheral [Unknown]

NARRATIVE: CASE EVENT DATE: 201608
